FAERS Safety Report 7109228-3 (Version None)
Quarter: 2010Q4

REPORT INFORMATION
  Report Type: 
  Country: None (occurrence: None)
  Receive Date: 20101117
  Receipt Date: 20101105
  Transmission Date: 20110411
  Serious: Yes (Hospitalization, Other)
  Sender: FDA-Public Use
  Company Number: CA-ELI_LILLY_AND_COMPANY-CA201011001944

PATIENT
  Age: 84 Year
  Sex: Female

DRUGS (9)
  1. FORTEO [Suspect]
     Indication: OSTEOPOROSIS
     Dosage: 20 UG, DAILY (1/D)
     Route: 058
     Dates: start: 20091014
  2. ASAPHEN [Concomitant]
  3. LIPITOR [Concomitant]
  4. PANTOLOC                           /01263202/ [Concomitant]
  5. ALTACE [Concomitant]
  6. EURO-D [Concomitant]
  7. APO-CAL [Concomitant]
  8. PAXIL [Concomitant]
  9. TYLENOL (CAPLET) [Concomitant]

REACTIONS (4)
  - ARTHRALGIA [None]
  - CONTUSION [None]
  - FALL [None]
  - PELVIC FRACTURE [None]
